FAERS Safety Report 15349754 (Version 1)
Quarter: 2018Q3

REPORT INFORMATION
  Report Type: Spontaneous
  Country: US (occurrence: US)
  Receive Date: 20180904
  Receipt Date: 20180904
  Transmission Date: 20181010
  Serious: Yes (Hospitalization)
  Sender: FDA-Public Use
  Company Number: US-CELGENEUS-USA-20180809306

PATIENT
  Age: 62 Year
  Sex: Female
  Weight: 80 kg

DRUGS (1)
  1. REVLIMID [Suspect]
     Active Substance: LENALIDOMIDE
     Indication: PLASMA CELL MYELOMA
     Dosage: 15 MILLIGRAM
     Route: 048
     Dates: start: 20180514

REACTIONS (2)
  - Pneumonia [Recovered/Resolved]
  - Full blood count decreased [Recovered/Resolved]

NARRATIVE: CASE EVENT DATE: 201808
